FAERS Safety Report 14078246 (Version 1)
Quarter: 2017Q4

REPORT INFORMATION
  Report Type: Spontaneous
  Country: HR (occurrence: HR)
  Receive Date: 20171012
  Receipt Date: 20171012
  Transmission Date: 20180321
  Serious: Yes (Other)
  Sender: FDA-Public Use
  Company Number: HR-009507513-1710HRV004516

PATIENT
  Age: 2 Year
  Sex: Female
  Weight: 14 kg

DRUGS (2)
  1. SINGULAIR MINI 4 MG ORALNE GRANULES [Suspect]
     Active Substance: MONTELUKAST SODIUM
     Indication: BRONCHITIS
     Dosage: 1 BAG PER A DAY
     Route: 048
     Dates: start: 201609, end: 201706
  2. SINGULAIR MINI 4 MG ORALNE GRANULES [Suspect]
     Active Substance: MONTELUKAST SODIUM
     Dosage: 1 BAG PER A DAY
     Route: 048
     Dates: start: 20170901, end: 20170915

REACTIONS (2)
  - Pain in extremity [Recovered/Resolved]
  - Gait disturbance [Recovered/Resolved]

NARRATIVE: CASE EVENT DATE: 201612
